FAERS Safety Report 14596764 (Version 1)
Quarter: 2018Q1

REPORT INFORMATION
  Report Type: Spontaneous
  Country: BR (occurrence: BR)
  Receive Date: 20180304
  Receipt Date: 20180304
  Transmission Date: 20180509
  Serious: Yes (Other)
  Sender: FDA-Public Use
  Company Number: BR-BEH-2018088402

PATIENT
  Age: 64 Year
  Sex: Female

DRUGS (2)
  1. CORTICOSTEROID NOS [Concomitant]
     Active Substance: CORTICOSTEROID NOS
     Dosage: UNK
     Route: 065
     Dates: start: 20180201, end: 20180201
  2. PRIVIGEN [Suspect]
     Active Substance: HUMAN IMMUNOGLOBULIN G
     Indication: PRODUCT USED FOR UNKNOWN INDICATION
     Dosage: 15 G (3 BOTTLES OF 5G), TOT
     Route: 042
     Dates: start: 20180203, end: 20180203

REACTIONS (5)
  - Pyrexia [Recovered/Resolved]
  - Lymphopenia [Unknown]
  - Immunosuppression [Unknown]
  - Neutrophilia [Recovered/Resolved]
  - Infection [Recovered/Resolved]
